FAERS Safety Report 6412313-2 (Version None)
Quarter: 2009Q4

REPORT INFORMATION
  Report Type: 
  Country: None (occurrence: None)
  Receive Date: 20091023
  Receipt Date: 20091016
  Transmission Date: 20100525
  Serious: Yes (Other)
  Sender: FDA-Public Use
  Company Number: US-BIOGENIDEC-2009BI031889

PATIENT
  Sex: Female

DRUGS (1)
  1. AVONEX [Suspect]
     Indication: MULTIPLE SCLEROSIS
     Route: 030
     Dates: start: 20021005

REACTIONS (5)
  - BLINDNESS [None]
  - CHRONIC OBSTRUCTIVE PULMONARY DISEASE [None]
  - HIP FRACTURE [None]
  - KNEE OPERATION [None]
  - WRIST FRACTURE [None]
